FAERS Safety Report 12318661 (Version 1)
Quarter: 2016Q2

REPORT INFORMATION
  Report Type: Report from Study
  Country: US (occurrence: US)
  Receive Date: 20160429
  Receipt Date: 20160429
  Transmission Date: 20160815
  Serious: Yes (Hospitalization)
  Sender: FDA-Public Use
  Company Number: US-ABBVIE-16K-163-1615211-00

PATIENT
  Age: 14 Year
  Sex: Female

DRUGS (2)
  1. HUMIRA [Suspect]
     Active Substance: ADALIMUMAB
     Indication: CROHN^S DISEASE
     Dosage: DAY 15
     Route: 058
     Dates: start: 20160412, end: 20160412
  2. HUMIRA [Suspect]
     Active Substance: ADALIMUMAB
     Indication: CROHN^S DISEASE
     Dosage: DAY 1
     Route: 058
     Dates: start: 20160329, end: 20160329

REACTIONS (12)
  - Insomnia [Unknown]
  - Pyrexia [Recovered/Resolved]
  - Hypophagia [Unknown]
  - Decreased appetite [Unknown]
  - Diarrhoea haemorrhagic [Recovering/Resolving]
  - Diarrhoea [Recovering/Resolving]
  - Depressed mood [Unknown]
  - Fear [Unknown]
  - Weight decreased [Recovering/Resolving]
  - Vomiting [Unknown]
  - Abdominal pain [Recovering/Resolving]
  - Headache [Unknown]

NARRATIVE: CASE EVENT DATE: 2016
